FAERS Safety Report 8456680-7 (Version None)
Quarter: 2012Q2

REPORT INFORMATION
  Report Type: 
  Country: None (occurrence: None)
  Receive Date: 20120323
  Receipt Date: 20110901
  Transmission Date: 20120825
  Serious: Yes (Hospitalization)
  Sender: FDA-Public Use
  Company Number: 163-21880-11090354

PATIENT
  Age: 84 Year
  Sex: Female

DRUGS (10)
  1. CALCIUM CARBONATE [Concomitant]
  2. CLONIDINE HCL (CLONIDINE HYDROCHLORIDE) [Concomitant]
  3. SENNOSIDES (SENNOSIDE A) [Concomitant]
  4. HYDROCODONE/ACETAMINOPHEN (REMEDEINE) [Concomitant]
  5. XANAX [Concomitant]
  6. REVLIMID [Suspect]
     Indication: MULTIPLE MYELOMA
     Dosage: 25 MG, 21 , PO
     Route: 048
     Dates: start: 20110413
  7. DEXAMETHASONE [Concomitant]
  8. DOCUSATE SODIUM (DOCUSATE SODIUM) [Concomitant]
  9. PROCHLORPERAZINE MALEATE (PROCHLORPERAZINE MALEATE) [Concomitant]
  10. VESICARE [Concomitant]

REACTIONS (1)
  - BODY TEMPERATURE INCREASED [None]
